FAERS Safety Report 18365966 (Version 4)
Quarter: 2021Q4

REPORT INFORMATION
  Report Type: Spontaneous
  Country: US (occurrence: US)
  Receive Date: 20201009
  Receipt Date: 20211208
  Transmission Date: 20220303
  Serious: No
  Sender: FDA-Public Use
  Company Number: US-PFIZER INC-2020385637

PATIENT
  Age: 77 Year
  Sex: Female
  Weight: 58.97 kg

DRUGS (1)
  1. LYRICA [Suspect]
     Active Substance: PREGABALIN
     Indication: Arthritis
     Dosage: 75 MG, 1X/DAY
     Route: 048

REACTIONS (5)
  - Off label use [Unknown]
  - Expired product administered [Unknown]
  - Drug effective for unapproved indication [Unknown]
  - Bursitis [Unknown]
  - Hypoacusis [Unknown]

NARRATIVE: CASE EVENT DATE: 20200701
